FAERS Safety Report 6942567-5 (Version None)
Quarter: 2010Q3

REPORT INFORMATION
  Report Type: 
  Country: None (occurrence: None)
  Receive Date: 20100823
  Receipt Date: 20100813
  Transmission Date: 20110219
  Serious: Yes (Other)
  Sender: FDA-Public Use
  Company Number: 2010SP043522

PATIENT
  Sex: Male

DRUGS (5)
  1. REMERON [Suspect]
     Indication: DEPRESSION
     Dosage: 15 MG;QD;PO
     Route: 048
     Dates: start: 20100729, end: 20100807
  2. AMOXAN [Concomitant]
  3. HALCION [Concomitant]
  4. SULPIRIDE [Concomitant]
  5. ROHYPNOL [Concomitant]

REACTIONS (4)
  - BLOOD CREATINE PHOSPHOKINASE INCREASED [None]
  - BODY TEMPERATURE INCREASED [None]
  - GRAND MAL CONVULSION [None]
  - MUSCLE FATIGUE [None]
